FAERS Safety Report 8029415-X (Version None)
Quarter: 2012Q1

REPORT INFORMATION
  Report Type: 
  Country: None (occurrence: None)
  Receive Date: 20120106
  Receipt Date: 20111228
  Transmission Date: 20120608
  Serious: Yes (Other)
  Sender: FDA-Public Use
  Company Number: CA-ASTRAZENECA-2011SE67775

PATIENT
  Age: 17 Year
  Sex: Male

DRUGS (1)
  1. SYMBICORT [Suspect]
     Indication: ASTHMA
     Dosage: 200/6 MCG UNKNOWN
     Route: 055

REACTIONS (2)
  - ASTHMA [None]
  - DRUG DOSE OMISSION [None]
